FAERS Safety Report 25040224 (Version 1)
Quarter: 2025Q1

REPORT INFORMATION
  Report Type: Report from Study
  Country: ZA (occurrence: ZA)
  Receive Date: 20250305
  Receipt Date: 20250305
  Transmission Date: 20250409
  Serious: Yes (Hospitalization)
  Sender: ALEXION PHARMACEUTICALS
  Company Number: ZA-AstraZeneca-CH-00815647A

PATIENT
  Age: 67 Year

DRUGS (6)
  1. BUDESONIDE\FORMOTEROL [Suspect]
     Active Substance: BUDESONIDE\FORMOTEROL
     Indication: Asthma
  2. METFORMIN HYDROCHLORIDE [Concomitant]
     Active Substance: METFORMIN HYDROCHLORIDE
     Indication: Diabetes mellitus
  3. PREGABALIN [Concomitant]
     Active Substance: PREGABALIN
     Indication: Epilepsy
  4. Flustat [Concomitant]
  5. ALBUTEROL SULFATE [Concomitant]
     Active Substance: ALBUTEROL SULFATE
     Indication: Bronchospasm
  6. ETORICOXIB [Concomitant]
     Active Substance: ETORICOXIB
     Indication: Pain

REACTIONS (2)
  - Gastrointestinal disorder [Unknown]
  - Vomiting [Unknown]
